FAERS Safety Report 7328517-0 (Version None)
Quarter: 2011Q1

REPORT INFORMATION
  Report Type: 
  Country: None (occurrence: None)
  Receive Date: 20110225
  Receipt Date: 20110225
  Transmission Date: 20110831
  Serious: No
  Sender: FDA-Public Use
  Company Number: None

PATIENT
  Sex: Male

DRUGS (1)
  1. HUMIRA [Suspect]
     Indication: CROHN'S DISEASE
     Dosage: 160MG - DAY 1 - 80MG DAY 8 SUB Q
     Route: 058
     Dates: start: 20110101

REACTIONS (1)
  - HYPERHIDROSIS [None]
